FAERS Safety Report 7988848-8 (Version None)
Quarter: 2011Q4

REPORT INFORMATION
  Report Type: 
  Country: None (occurrence: None)
  Receive Date: 20111219
  Receipt Date: 20111209
  Transmission Date: 20120403
  Serious: Yes (Other)
  Sender: FDA-Public Use
  Company Number: ES-SHIRE-SPV1-2011-01269

PATIENT
  Sex: Male

DRUGS (5)
  1. ANAGRELIDE HYDROCHLORIDE [Suspect]
     Dosage: 0.5 MG, 2X/DAY:BID
     Route: 048
     Dates: start: 20100211, end: 20100312
  2. ANAGRELIDE HYDROCHLORIDE [Suspect]
     Indication: THROMBOCYTOSIS
     Dosage: 2 MG, DAILY
     Route: 048
     Dates: start: 20100115, end: 20100211
  3. ANAGRELIDE HYDROCHLORIDE [Suspect]
     Dosage: 0.5 MG, 1X/DAY:QD
     Route: 048
     Dates: start: 20091027, end: 20091126
  4. ANAGRELIDE HYDROCHLORIDE [Suspect]
     Dosage: 1.5 MG( 1MG - 0 - 0.5 MG), DAILY
     Route: 048
     Dates: start: 20091126, end: 20100115
  5. ANAGRELIDE HYDROCHLORIDE [Suspect]
     Dosage: 0.5 MG, 1X/DAY:QD
     Route: 048
     Dates: start: 20100312, end: 20100414

REACTIONS (1)
  - HEPATIC FUNCTION ABNORMAL [None]
